FAERS Safety Report 11643070 (Version 2)
Quarter: 2015Q4

REPORT INFORMATION
  Report Type: Other
  Country: GB (occurrence: GB)
  Receive Date: 20151020
  Receipt Date: 20151110
  Transmission Date: 20160304
  Serious: Yes (Death, Hospitalization, Other)
  Sender: FDA-Public Use
  Company Number: GB-STRIDES ARCOLAB LIMITED-2015SP001581

PATIENT

DRUGS (5)
  1. MYCOPHENOLATE MOFETIL. [Suspect]
     Active Substance: MYCOPHENOLATE MOFETIL
     Indication: IMMUNOSUPPRESSION
     Dosage: 1 G, BID
     Route: 048
     Dates: start: 200302, end: 201301
  2. MYCOPHENOLATE MOFETIL. [Suspect]
     Active Substance: MYCOPHENOLATE MOFETIL
     Dosage: 250 MG, UNK
     Route: 048
     Dates: start: 201501, end: 201503
  3. MYCOPHENOLATE MOFETIL. [Suspect]
     Active Substance: MYCOPHENOLATE MOFETIL
     Dosage: 500 MG, BID
     Route: 048
     Dates: start: 201301, end: 201501
  4. PREDNISOLONE. [Suspect]
     Active Substance: PREDNISOLONE
     Dosage: 2.5 MG, QD
     Route: 048
     Dates: start: 201501, end: 201503
  5. PREDNISOLONE. [Suspect]
     Active Substance: PREDNISOLONE
     Indication: IMMUNOSUPPRESSION
     Dosage: 5 MG, QD
     Route: 048
     Dates: start: 200302, end: 201501

REACTIONS (6)
  - Cell-mediated cytotoxicity [None]
  - Abnormal loss of weight [Not Recovered/Not Resolved]
  - No therapeutic response [None]
  - Post transplant lymphoproliferative disorder [Fatal]
  - Cytomegalovirus infection [Not Recovered/Not Resolved]
  - Colitis [Not Recovered/Not Resolved]

NARRATIVE: CASE EVENT DATE: 201301
